FAERS Safety Report 7900074-7 (Version None)
Quarter: 2011Q4

REPORT INFORMATION
  Report Type: 
  Country: None (occurrence: None)
  Receive Date: 20111108
  Receipt Date: 20111104
  Transmission Date: 20120403
  Serious: Yes (Hospitalization)
  Sender: FDA-Public Use
  Company Number: US-BIOGENIDEC-2011BI034798

PATIENT
  Age: 61 Year
  Sex: Male

DRUGS (3)
  1. AVONEX [Suspect]
     Indication: MULTIPLE SCLEROSIS
     Route: 030
     Dates: start: 20080101
  2. AVONEX [Suspect]
     Route: 030
     Dates: start: 20030801, end: 20040501
  3. AVONEX [Suspect]
     Route: 030
     Dates: start: 20000101, end: 20030701

REACTIONS (3)
  - SPINAL FRACTURE [None]
  - CERVICAL VERTEBRAL FRACTURE [None]
  - SYNCOPE [None]
